FAERS Safety Report 6615899-8 (Version None)
Quarter: 2010Q1

REPORT INFORMATION
  Report Type: 
  Country: None (occurrence: None)
  Receive Date: 20100305
  Receipt Date: 20100302
  Transmission Date: 20100710
  Serious: Yes (Other)
  Sender: FDA-Public Use
  Company Number: US-ELI_LILLY_AND_COMPANY-US201003000948

PATIENT
  Age: 75 Year
  Sex: Female

DRUGS (2)
  1. HUMAN INSULIN (RDNA ORIGIN) [Suspect]
     Dosage: 60 U, EACH MORNING
  2. HUMAN INSULIN (RDNA ORIGIN) [Suspect]
     Dosage: 30 U, EACH EVENING

REACTIONS (1)
  - BLINDNESS [None]
